FAERS Safety Report 16356064 (Version 1)
Quarter: 2019Q2

REPORT INFORMATION
  Report Type: Spontaneous
  Country: US (occurrence: US)
  Receive Date: 20190526
  Receipt Date: 20190526
  Transmission Date: 20190711
  Serious: No
  Sender: FDA-Public Use
  Company Number: US-AMGEN-USASP2019080509

PATIENT
  Age: 6 Month
  Sex: Male

DRUGS (1)
  1. ENBREL [Suspect]
     Active Substance: ETANERCEPT
     Indication: KAWASAKI^S DISEASE
     Dosage: 0.8 MILLIGRAM/KILOGRAM WEEKLY FOR 2 TO 3 WEEKS
     Route: 065

REACTIONS (2)
  - Off label use [Unknown]
  - Product dispensing error [Unknown]
